FAERS Safety Report 9848064 (Version 1)
Quarter: 2013Q4

REPORT INFORMATION
  Report Type: Spontaneous
  Country: US (occurrence: None)
  Receive Date: 20131223
  Receipt Date: 20131223
  Transmission Date: 20140711
  Serious: No
  Sender: FDA-Public Use
  Company Number: CABO-13003471

PATIENT
  Age: 24 Year
  Sex: Male

DRUGS (7)
  1. COMETRIQ (CABOZANTINIB) CAPSULE [Suspect]
     Indication: THYROID CANCER
     Route: 048
     Dates: start: 20130309, end: 2013
  2. ZOFRAN (ONDANSETRON) [Concomitant]
  3. SYNTHROID (LEVOTHYROXINE SODIUM) [Concomitant]
  4. MIRTAZAPINE (MIRTAZAPINE) [Concomitant]
  5. OXYCONTIN (OXYCODONE HYDROCHLORIDE) [Concomitant]
  6. OXYCODONE (OXYCODONE) [Concomitant]
  7. NASONEX (MOMETASONE FUROATE) [Concomitant]

REACTIONS (1)
  - Pharyngitis streptococcal [None]
